FAERS Safety Report 15746414 (Version 1)
Quarter: 2018Q4

REPORT INFORMATION
  Report Type: Spontaneous
  Country: US (occurrence: US)
  Receive Date: 20181220
  Receipt Date: 20181220
  Transmission Date: 20190205
  Serious: Yes (Death)
  Sender: FDA-Public Use
  Company Number: US-AKRON, INC.-2060448

PATIENT
  Age: 90 Year
  Sex: Male

DRUGS (1)
  1. DRONABINOL 2.5 MG CAPSULE CIII [Suspect]
     Active Substance: DRONABINOL
     Route: 047

REACTIONS (2)
  - Death [Fatal]
  - Drug ineffective [Fatal]

NARRATIVE: CASE EVENT DATE: 20180504
